FAERS Safety Report 13486239 (Version 1)
Quarter: 2017Q2

REPORT INFORMATION
  Report Type: Spontaneous
  Country: IT (occurrence: IT)
  Receive Date: 20170426
  Receipt Date: 20170426
  Transmission Date: 20170830
  Serious: Yes (Other)
  Sender: FDA-Public Use
  Company Number: IT-PFIZER INC-2017174503

PATIENT
  Age: 54 Year
  Sex: Male

DRUGS (3)
  1. ALCOHOL. [Suspect]
     Active Substance: ALCOHOL
     Indication: BLADDER IRRIGATION
     Dosage: UNK (CUMULATIVE ETHANOL: 107 G)
  2. CEFTRIAXONE SODIUM. [Suspect]
     Active Substance: CEFTRIAXONE SODIUM
     Indication: ANTIBIOTIC PROPHYLAXIS
     Dosage: 1 G, UNK
     Route: 030
  3. GLYCINE. [Suspect]
     Active Substance: GLYCINE
     Indication: BLADDER IRRIGATION
     Dosage: UNK (TOTAL AMOUNT OF SOLUTION USED: 10 LITRES)

REACTIONS (3)
  - Transurethral resection syndrome [Recovered/Resolved]
  - Poisoning [Recovered/Resolved]
  - Acute hepatic failure [Recovered/Resolved]
